FAERS Safety Report 10681805 (Version 1)
Quarter: 2014Q4

REPORT INFORMATION
  Report Type: Spontaneous
  Country: None (occurrence: JP)
  Receive Date: 20141230
  Receipt Date: 20141230
  Transmission Date: 20150529
  Serious: Yes (Hospitalization)
  Sender: FDA-Public Use
  Company Number: JP-TEVA-531410ISR

PATIENT
  Age: 70 Year
  Sex: Male

DRUGS (4)
  1. DEXART [Concomitant]
     Active Substance: DEXAMETHASONE SODIUM PHOSPHATE
     Indication: GASTRIC CANCER
     Dosage: 6.6 MILLIGRAM DAILY;
     Route: 042
     Dates: start: 20140625, end: 20140912
  2. DOCETAXEL. [Suspect]
     Active Substance: DOCETAXEL
     Dosage: 67 MILLIGRAM DAILY;
     Route: 042
     Dates: start: 20140731, end: 20140912
  3. FILGRASTIM BS INJ. ^NK^ (FILGRASTIM (GENETICAL RECOMBINATION)) [Suspect]
     Active Substance: FILGRASTIM
     Indication: AGRANULOCYTOSIS
     Dosage: 150 MICROGRAM/M2 DAILY;
     Route: 058
     Dates: start: 20140702, end: 20140707
  4. DOCETAXEL. [Suspect]
     Active Substance: DOCETAXEL
     Indication: GASTRIC CANCER
     Dosage: 90 MILLIGRAM DAILY;
     Route: 042
     Dates: start: 20140625, end: 20140625

REACTIONS (4)
  - Pyrexia [Unknown]
  - White blood cell count decreased [Recovered/Resolved]
  - Anaemia [Recovered/Resolved]
  - Platelet count decreased [Recovered/Resolved]

NARRATIVE: CASE EVENT DATE: 20140703
